FAERS Safety Report 25576904 (Version 1)
Quarter: 2025Q3

REPORT INFORMATION
  Report Type: Spontaneous
  Country: US (occurrence: US)
  Receive Date: 20250718
  Receipt Date: 20250718
  Transmission Date: 20251020
  Serious: Yes (Other)
  Sender: SANOFI AVENTIS
  Company Number: US-SANOFI-02589166

PATIENT
  Age: 54 Year
  Sex: Female

DRUGS (1)
  1. LANTUS SOLOSTAR [Suspect]
     Active Substance: INSULIN GLARGINE
     Indication: Type 1 diabetes mellitus
     Dosage: 12 IU, QD
     Route: 058
     Dates: start: 202501

REACTIONS (2)
  - Diabetes mellitus inadequate control [Unknown]
  - Medical device removal [Recovered/Resolved]

NARRATIVE: CASE EVENT DATE: 20250605
